FAERS Safety Report 9614243 (Version 1)
Quarter: 2013Q4

REPORT INFORMATION
  Report Type: Report from Study
  Country: IT (occurrence: IT)
  Receive Date: 20131011
  Receipt Date: 20131011
  Transmission Date: 20140711
  Serious: Yes (Other)
  Sender: FDA-Public Use
  Company Number: IT-ROCHE-1287557

PATIENT
  Sex: 0

DRUGS (7)
  1. CAPECITABINE [Suspect]
     Indication: BREAST CANCER
     Dosage: 2000-2500 MG/M2 FROM DAY 1-14
     Route: 048
  2. GEMCITABINE [Suspect]
     Indication: BREAST CANCER
     Dosage: 800-1250 MG/M2 WEEKLY FOR 2 WEEKS IN A 3-WEEK CYCLE
     Route: 042
  3. VINORELBINE [Suspect]
     Indication: BREAST CANCER
     Dosage: 25-30 MG/M2
     Route: 042
  4. VINORELBINE [Suspect]
     Dosage: 60-80 MG/M2
     Route: 048
  5. DOCETAXEL [Suspect]
     Indication: BREAST CANCER
     Dosage: 75-100 MG/M2
     Route: 042
  6. PACLITAXEL [Suspect]
     Indication: BREAST CANCER
     Dosage: 175-200 MG/M2
     Route: 042
  7. PACLITAXEL [Suspect]
     Dosage: 80-90 MG/M2 WEEKLY FOR 3 WEEKS IN A 4-WEEK CYCLE
     Route: 042

REACTIONS (18)
  - Fatigue [Unknown]
  - Neutropenia [Unknown]
  - Dyspnoea [Unknown]
  - Back pain [Unknown]
  - Palmar-plantar erythrodysaesthesia syndrome [Unknown]
  - Thrombocytopenia [Unknown]
  - Nausea [Unknown]
  - Diarrhoea [Unknown]
  - Asthenia [Unknown]
  - Mucosal inflammation [Unknown]
  - Decreased appetite [Unknown]
  - Vomiting [Unknown]
  - Leukopenia [Unknown]
  - Headache [Unknown]
  - Pain in extremity [Unknown]
  - Anaemia [Unknown]
  - Abdominal pain [Unknown]
  - Constipation [Unknown]
